FAERS Safety Report 13726560 (Version 13)
Quarter: 2018Q2

REPORT INFORMATION
  Report Type: Report from Study
  Country: IN (occurrence: IN)
  Receive Date: 20170706
  Receipt Date: 20180430
  Transmission Date: 20180711
  Serious: Yes (Death, Hospitalization, Other)
  Sender: FDA-Public Use
  Company Number: IN-B.I. PHARMACEUTICALS,INC./RIDGEFIELD-2017-BI-037738

PATIENT
  Age: 67 Year
  Sex: Male
  Weight: 58 kg

DRUGS (89)
  1. PLACEBO [Suspect]
     Active Substance: UNSPECIFIED INGREDIENT
     Indication: IDIOPATHIC PULMONARY FIBROSIS
     Route: 048
     Dates: start: 20170606, end: 20170624
  2. ECOSPRIN AV [Concomitant]
     Indication: ACUTE CORONARY SYNDROME
     Dosage: DAILY DOSE: 75/20 MG
     Route: 048
     Dates: start: 20170626
  3. ECOSPRIN AV [Concomitant]
     Route: 048
     Dates: start: 20171010, end: 20171030
  4. WYSOLONE [Concomitant]
     Active Substance: PREDNISOLONE
     Indication: IDIOPATHIC PULMONARY FIBROSIS
     Route: 048
     Dates: start: 20170322, end: 20170709
  5. WYSOLONE [Concomitant]
     Active Substance: PREDNISOLONE
     Route: 048
     Dates: start: 20170718, end: 20170803
  6. MUCINAC [Concomitant]
     Indication: DRUG THERAPY
     Route: 048
     Dates: start: 20160326
  7. UDILIV [Concomitant]
     Active Substance: URSODIOL
     Route: 048
     Dates: start: 20170628
  8. UDILIV [Concomitant]
     Active Substance: URSODIOL
     Route: 048
     Dates: start: 20170703, end: 20170703
  9. EVABRAD [Concomitant]
     Route: 048
     Dates: start: 20170725, end: 20170804
  10. DOXT SL [Concomitant]
     Route: 048
     Dates: start: 20170804
  11. DOXT SL [Concomitant]
     Route: 048
     Dates: start: 20171010, end: 20171010
  12. DOXT SL [Concomitant]
     Route: 048
     Dates: start: 20171011, end: 20171011
  13. KENACORT [Concomitant]
     Active Substance: TRIAMCINOLONE
     Indication: MOUTH ULCERATION
     Route: 050
     Dates: start: 20171010
  14. AMARYL [Concomitant]
     Active Substance: GLIMEPIRIDE
     Route: 048
     Dates: start: 20170721
  15. RACIPER [Concomitant]
     Active Substance: ESOMEPRAZOLE MAGNESIUM
     Indication: GASTROOESOPHAGEAL REFLUX DISEASE
     Route: 042
     Dates: start: 20170625, end: 20170625
  16. RACIPER [Concomitant]
     Active Substance: ESOMEPRAZOLE MAGNESIUM
     Route: 042
     Dates: start: 20170725
  17. RACIPER [Concomitant]
     Active Substance: ESOMEPRAZOLE MAGNESIUM
     Route: 042
     Dates: start: 20170804
  18. GEMFOS [Concomitant]
     Indication: OSTEOPOROSIS
     Route: 048
     Dates: start: 20160208
  19. DUOLIN [Concomitant]
     Dosage: 2.50MG/1000MCG
     Route: 050
     Dates: end: 20170625
  20. DUOLIN [Concomitant]
     Dosage: DAILY DOSE: 3.75MG/1500MG
     Route: 055
     Dates: start: 20170628, end: 20170628
  21. DUOLIN [Concomitant]
     Dosage: DAILY  DOSE 1.25MG/500MCG
     Route: 055
     Dates: start: 20171009, end: 20171009
  22. MUCINAC [Concomitant]
     Route: 048
     Dates: start: 20170627, end: 20170702
  23. DYTOR [Concomitant]
     Active Substance: TORSEMIDE
     Route: 048
     Dates: start: 20170703, end: 20170721
  24. SOLU-MEDROL [Concomitant]
     Active Substance: METHYLPREDNISOLONE SODIUM SUCCINATE
     Route: 042
     Dates: start: 20171009, end: 20171009
  25. ATORVA [Concomitant]
     Indication: HYPERLIPIDAEMIA
     Route: 048
     Dates: start: 20171010
  26. NINTEDANIB [Suspect]
     Active Substance: NINTEDANIB
     Route: 048
     Dates: end: 20171008
  27. GLEVO [Concomitant]
     Active Substance: LEVOFLOXACIN
     Indication: ANTIBIOTIC THERAPY
     Route: 048
     Dates: start: 20170628
  28. AMARYL [Concomitant]
     Active Substance: GLIMEPIRIDE
     Route: 048
     Dates: start: 20170717, end: 20170717
  29. DYTOR PLUS [Concomitant]
     Indication: CARDIAC FAILURE
     Route: 048
     Dates: start: 20170701, end: 20170701
  30. MONTAIR [Concomitant]
     Active Substance: MONTELUKAST SODIUM
     Route: 048
     Dates: start: 20171009
  31. SYSCAN [Concomitant]
     Indication: ANTIFUNGAL TREATMENT
     Route: 048
     Dates: start: 20170720, end: 20170721
  32. NINTEDANIB [Suspect]
     Active Substance: NINTEDANIB
     Route: 048
     Dates: end: 20170724
  33. WYSOLONE [Concomitant]
     Active Substance: PREDNISOLONE
     Route: 048
     Dates: start: 20171021, end: 20171024
  34. TECZINE [Concomitant]
     Indication: HYPERSENSITIVITY
     Route: 048
  35. DYTOR PLUS [Concomitant]
     Route: 048
     Dates: start: 20171009, end: 20171017
  36. UDILIV [Concomitant]
     Active Substance: URSODIOL
     Route: 048
     Dates: start: 20170617, end: 20170803
  37. CANDID [Concomitant]
     Route: 065
     Dates: start: 20171010
  38. PREDNISOLONE. [Concomitant]
     Active Substance: PREDNISOLONE
     Indication: IDIOPATHIC PULMONARY FIBROSIS
     Route: 065
     Dates: start: 20171016, end: 20171026
  39. VOLIX M [Concomitant]
     Route: 048
     Dates: start: 20170703
  40. AMARYL [Concomitant]
     Active Substance: GLIMEPIRIDE
     Indication: HYPERGLYCAEMIA
     Route: 048
     Dates: start: 20170702
  41. ELTROXIN [Concomitant]
     Active Substance: LEVOTHYROXINE
     Indication: HYPOTHYROIDISM
     Route: 048
     Dates: start: 20170516
  42. ELTROXIN [Concomitant]
     Active Substance: LEVOTHYROXINE
     Route: 048
  43. RACIPER [Concomitant]
     Active Substance: ESOMEPRAZOLE MAGNESIUM
     Route: 042
     Dates: start: 20170626, end: 20170629
  44. RACIPER [Concomitant]
     Active Substance: ESOMEPRAZOLE MAGNESIUM
     Route: 042
     Dates: start: 20170630, end: 20170630
  45. WYSOLONE [Concomitant]
     Active Substance: PREDNISOLONE
     Route: 048
     Dates: start: 20170805
  46. SYMBICORT [Concomitant]
     Active Substance: BUDESONIDE\FORMOTEROL FUMARATE DIHYDRATE
     Indication: BRONCHOSPASM
     Dosage: DAILY DOSE : 320/9 MICROGRAM
     Route: 055
     Dates: start: 20170322
  47. DUOLIN [Concomitant]
     Dosage: DAILY DOSE: 5MG/2000MCG
     Route: 055
     Dates: start: 20171010
  48. MUCINAC [Concomitant]
     Route: 048
     Dates: start: 20170703
  49. SOLU-MEDROL [Concomitant]
     Active Substance: METHYLPREDNISOLONE SODIUM SUCCINATE
     Route: 042
     Dates: start: 20170717, end: 20170717
  50. SOLU-MEDROL [Concomitant]
     Active Substance: METHYLPREDNISOLONE SODIUM SUCCINATE
     Route: 042
     Dates: start: 20171010, end: 20171015
  51. IVABRAD [Concomitant]
     Route: 048
  52. BUDESONIDE. [Concomitant]
     Active Substance: BUDESONIDE
     Indication: BRONCHOSPASM
     Route: 055
     Dates: start: 20170717, end: 20170721
  53. SHELCAL [Concomitant]
     Indication: MINERAL SUPPLEMENTATION
     Route: 048
     Dates: start: 20171011, end: 20171029
  54. ECOSPRIN AV [Concomitant]
     Dosage: DAILY DOSE: 75/20MG
     Route: 048
  55. GLEVO [Concomitant]
     Active Substance: LEVOFLOXACIN
     Route: 048
     Dates: start: 20170629, end: 20170703
  56. VOLIX M [Concomitant]
     Indication: HYPERGLYCAEMIA
     Route: 048
     Dates: start: 20170630
  57. WYSOLONE [Concomitant]
     Active Substance: PREDNISOLONE
     Route: 048
     Dates: start: 20171016, end: 20171020
  58. MUCINAC [Concomitant]
     Route: 048
     Dates: start: 20170625, end: 20170626
  59. DYTOR [Concomitant]
     Active Substance: TORSEMIDE
     Route: 048
     Dates: start: 20170720, end: 20170804
  60. SOLU-MEDROL [Concomitant]
     Active Substance: METHYLPREDNISOLONE SODIUM SUCCINATE
     Indication: IDIOPATHIC PULMONARY FIBROSIS
     Route: 042
     Dates: start: 20170625, end: 20170625
  61. EVABRAD [Concomitant]
     Indication: TACHYCARDIA
     Route: 048
     Dates: start: 20161015
  62. DOXT SL [Concomitant]
     Route: 048
     Dates: start: 20171012, end: 20171012
  63. IVABRAD [Concomitant]
     Indication: CARDIAC FAILURE
     Route: 048
     Dates: start: 20171010
  64. MONTAIR [Concomitant]
     Active Substance: MONTELUKAST SODIUM
     Indication: HYPERSENSITIVITY
     Dosage: DAILY DOSE: 10/120MG
     Route: 048
     Dates: start: 20170619, end: 20170803
  65. NINTEDANIB [Suspect]
     Active Substance: NINTEDANIB
     Indication: IDIOPATHIC PULMONARY FIBROSIS
     Route: 048
     Dates: start: 20170606, end: 20170716
  66. NINTEDANIB [Suspect]
     Active Substance: NINTEDANIB
     Route: 048
     Dates: end: 20170724
  67. ELTROXIN [Concomitant]
     Active Substance: LEVOTHYROXINE
     Route: 048
     Dates: start: 20170626
  68. ELTROXIN [Concomitant]
     Active Substance: LEVOTHYROXINE
     Route: 048
     Dates: start: 20171010
  69. WYSOLONE [Concomitant]
     Active Substance: PREDNISOLONE
     Route: 048
     Dates: start: 20170701, end: 20170705
  70. DUOLIN [Concomitant]
     Indication: BRONCHOSPASM
     Dosage: DAILY DOSE: 1.25/500 MCG
     Route: 050
     Dates: start: 20170625
  71. DUOLIN [Concomitant]
     Dosage: 5MG/2000MCG
     Route: 050
     Dates: start: 20170626
  72. DUOLIN [Concomitant]
     Dosage: DAILY DOSE: 3.75MG/1500MG
     Route: 055
     Dates: start: 20170702, end: 20170702
  73. DYTOR PLUS [Concomitant]
     Route: 048
     Dates: start: 20170703, end: 20170719
  74. SOLU-MEDROL [Concomitant]
     Active Substance: METHYLPREDNISOLONE SODIUM SUCCINATE
     Route: 042
     Dates: start: 20170626, end: 20170630
  75. DILZEM  CD [Concomitant]
     Active Substance: DILTIAZEM HYDROCHLORIDE
     Indication: CARDIAC FAILURE
     Route: 048
     Dates: start: 20170626
  76. UDILIV [Concomitant]
     Active Substance: URSODIOL
     Indication: HEPATIC ENZYME INCREASED
     Route: 048
     Dates: start: 20170627, end: 20170627
  77. SYSCAN [Concomitant]
     Route: 048
     Dates: start: 20171018, end: 20171024
  78. AMARYL [Concomitant]
     Active Substance: GLIMEPIRIDE
     Route: 048
     Dates: start: 20170718, end: 20170720
  79. RACIPER [Concomitant]
     Active Substance: ESOMEPRAZOLE MAGNESIUM
     Route: 042
     Dates: start: 20170717, end: 20170723
  80. RACIPER [Concomitant]
     Active Substance: ESOMEPRAZOLE MAGNESIUM
     Route: 042
     Dates: start: 20170724, end: 20170724
  81. RACIPER [Concomitant]
     Active Substance: ESOMEPRAZOLE MAGNESIUM
     Route: 042
     Dates: start: 20171010
  82. GEMFOS [Concomitant]
     Route: 048
     Dates: start: 20170625, end: 20170625
  83. DUOLIN [Concomitant]
     Dosage: DAILY DOSE: 2.50MG/1000MCG
     Route: 055
     Dates: start: 20170703, end: 20170703
  84. DYTOR [Concomitant]
     Active Substance: TORSEMIDE
     Indication: CARDIAC FAILURE
     Route: 048
     Dates: start: 20170701, end: 20170703
  85. UDILIV [Concomitant]
     Active Substance: URSODIOL
     Route: 065
     Dates: start: 20170804
  86. LACTIHEP [Concomitant]
     Indication: CONSTIPATION
     Route: 048
     Dates: start: 20170626, end: 20170626
  87. LACTIHEP [Concomitant]
     Route: 048
     Dates: start: 20170627, end: 20170702
  88. DOXT SL [Concomitant]
     Indication: ANTIBIOTIC THERAPY
     Route: 048
     Dates: start: 20170619, end: 20170802
  89. CANDID [Concomitant]
     Indication: ANTIFUNGAL TREATMENT
     Route: 065
     Dates: start: 20170720, end: 20170722

REACTIONS (11)
  - Urinary tract infection [Recovered/Resolved]
  - Malnutrition [Unknown]
  - Pneumonia [Fatal]
  - Hyperglycaemia [Not Recovered/Not Resolved]
  - Somnolence [Unknown]
  - Starvation [Unknown]
  - Pyrexia [Recovered/Resolved]
  - Left ventricular failure [Recovered/Resolved]
  - Septic shock [Fatal]
  - Gait disturbance [Recovered/Resolved]
  - Hepatic enzyme increased [Recovered/Resolved]

NARRATIVE: CASE EVENT DATE: 20170625
